FAERS Safety Report 6297871-3 (Version None)
Quarter: 2009Q3

REPORT INFORMATION
  Report Type: 
  Country: None (occurrence: None)
  Receive Date: 20090804
  Receipt Date: 20090804
  Transmission Date: 20100115
  Serious: Yes (Life-Threatening, Hospitalization)
  Sender: FDA-Public Use
  Company Number: None

PATIENT
  Age: 40 Year
  Sex: Male
  Weight: 95.2554 kg

DRUGS (1)
  1. LITHIUM CARBONATE [Suspect]
     Indication: AFFECTIVE DISORDER
     Dosage: 900 MG, QD, PO
     Route: 048
     Dates: start: 20081224, end: 20090110

REACTIONS (7)
  - CONFUSIONAL STATE [None]
  - CONVULSION [None]
  - FALL [None]
  - HEADACHE [None]
  - MUSCLE TWITCHING [None]
  - RENAL DISORDER [None]
  - THERAPEUTIC AGENT TOXICITY [None]
